FAERS Safety Report 13449098 (Version 1)
Quarter: 2017Q2

REPORT INFORMATION
  Report Type: Spontaneous
  Country: US (occurrence: US)
  Receive Date: 20170417
  Receipt Date: 20170417
  Transmission Date: 20170830
  Serious: No
  Sender: FDA-Public Use
  Company Number: US-CORCEPT THERAPEUTICS INC.-US-2017CRT000006

PATIENT

DRUGS (2)
  1. KORLYM [Suspect]
     Active Substance: MIFEPRISTONE
     Indication: PRODUCT USED FOR UNKNOWN INDICATION
     Dosage: 300 MG,  THREE TIMES A WEEK
     Route: 048
  2. KORLYM [Suspect]
     Active Substance: MIFEPRISTONE
     Dosage: 300 MG, TWO TIMES A WEEK

REACTIONS (2)
  - Oedema [Unknown]
  - Inappropriate schedule of drug administration [Not Recovered/Not Resolved]
